FAERS Safety Report 6395770-X (Version None)
Quarter: 2009Q4

REPORT INFORMATION
  Report Type: 
  Country: None (occurrence: None)
  Receive Date: 20091006
  Receipt Date: 20090924
  Transmission Date: 20100525
  Serious: Yes (Hospitalization)
  Sender: FDA-Public Use
  Company Number: GXKR2009US10615

PATIENT
  Age: 70 Year
  Sex: Male

DRUGS (31)
  1. DEXAMETHASONE [Suspect]
     Indication: MULTIPLE MYELOMA
  2. HEPARIN [Suspect]
  3. CEFEPIME [Suspect]
     Indication: PSEUDOMONAS INFECTION
     Dosage: INTRAVENOUS
     Route: 042
  4. CEFEPIME [Suspect]
     Indication: STREPTOCOCCAL INFECTION
     Dosage: INTRAVENOUS
     Route: 042
  5. MELOXICAM [Suspect]
     Indication: MULTIPLE MYELOMA
  6. PAMIDRONIC ACID (NGX) (PAMIDRONIC ACID) UNKNOWN [Suspect]
     Dosage: ONE INFUSION, INFUSION
  7. VANCOMYCIN HCL [Suspect]
     Indication: PSEUDOMONAS INFECTION
     Dosage: INTRAVENOUS
     Route: 042
  8. VANCOMYCIN HCL [Suspect]
     Indication: STREPTOCOCCAL INFECTION
     Dosage: INTRAVENOUS
     Route: 042
  9. FLUCONAZOLE [Suspect]
     Indication: ORAL CANDIDIASIS
     Dosage: ORAL
     Route: 048
  10. MORPHINE SULFATE [Suspect]
  11. ACETAMINOPHEN [Suspect]
  12. ENOXAPARIN SODIUM [Suspect]
  13. THALIDOMIDE [Suspect]
  14. HYDROCODONE (HYDROCODONE) [Concomitant]
  15. RANITIDNE HYDROCHLORIDE (RANITIDINE HYDROCHLORIDE) [Concomitant]
  16. OMEPRAZOLE [Concomitant]
  17. PROMETHAZINE HYDROCHLORIDE TAB [Concomitant]
  18. LIDOCAINE (LIDOCAINE) PATCH, 5% [Concomitant]
  19. POLYETHYLENE GLYCOL 3350 (MACROGOL 3350) [Concomitant]
  20. TESTOSTERONE ENANTATE (TESTOSTERONE ENANTATE) INJECTION [Concomitant]
  21. NALOXONE [Concomitant]
  22. PANTOPRAZOLE SODIUM [Concomitant]
  23. DIPHENHYDRAMINE HYDROCHLORIDE (DIPHENHYDRAMINE HYDROCHLORIDE)Q [Concomitant]
  24. ZOLPIDEM TARTRATE [Concomitant]
  25. AMIODARONE HCL [Concomitant]
  26. ALPRAZOLAM [Concomitant]
  27. FILGRASTIM (FILGRASTIM) [Concomitant]
  28. MEROPENEM [Concomitant]
  29. DAPTOMYCIN (DAPTOMYCIN) [Concomitant]
  30. TOBRAMYCIN [Concomitant]
  31. CASPOFUNGIN ACETATE (CASPOFUNGIN ACETATE) [Concomitant]

REACTIONS (9)
  - ACUTE GENERALISED EXANTHEMATOUS PUSTULOSIS [None]
  - ATRIAL FIBRILLATION [None]
  - BLOOD CULTURE POSITIVE [None]
  - FEBRILE NEUTROPENIA [None]
  - ORAL CANDIDIASIS [None]
  - PHARYNGITIS [None]
  - PSEUDOMONAS INFECTION [None]
  - STREPTOCOCCAL INFECTION [None]
  - UNRESPONSIVE TO STIMULI [None]
